FAERS Safety Report 10652630 (Version 1)
Quarter: 2014Q4

REPORT INFORMATION
  Report Type: Spontaneous
  Country: FR (occurrence: FR)
  Receive Date: 20141215
  Receipt Date: 20141215
  Transmission Date: 20150529
  Serious: Yes (Other)
  Sender: FDA-Public Use
  Company Number: FR-WATSON-2014-26528

PATIENT
  Age: 45 Year
  Sex: Female

DRUGS (6)
  1. BACLOFEN (UNKNOWN) [Suspect]
     Active Substance: BACLOFEN
     Indication: ALCOHOLISM
     Dosage: 240 UNK, UNK
     Route: 065
  2. BACLOFEN (UNKNOWN) [Suspect]
     Active Substance: BACLOFEN
     Dosage: 210 MG, DAILY
     Route: 065
  3. ZOPICLONE [Concomitant]
     Active Substance: ZOPICLONE
     Indication: PRODUCT USED FOR UNKNOWN INDICATION
     Dosage: 7.5 MG, DAILY
     Route: 065
  4. BACLOFEN (UNKNOWN) [Suspect]
     Active Substance: BACLOFEN
     Dosage: 180 MG, DAILY
     Route: 065
  5. BACLOFEN (UNKNOWN) [Suspect]
     Active Substance: BACLOFEN
     Dosage: 120 MG, DAILY
     Route: 065
  6. VENLAFAXINE [Concomitant]
     Active Substance: VENLAFAXINE HYDROCHLORIDE
     Indication: PRODUCT USED FOR UNKNOWN INDICATION
     Dosage: 75 MG, DAILY
     Route: 065

REACTIONS (2)
  - Tinnitus [Recovering/Resolving]
  - Off label use [Recovered/Resolved]
